FAERS Safety Report 9878741 (Version 1)
Quarter: 2014Q1

REPORT INFORMATION
  Report Type: Spontaneous
  Country: US (occurrence: US)
  Receive Date: 20140206
  Receipt Date: 20140206
  Transmission Date: 20141002
  Serious: No
  Sender: FDA-Public Use
  Company Number: US-TEVA-461249USA

PATIENT
  Sex: 0

DRUGS (1)
  1. FENTORA [Suspect]
     Dosage: ^ LOW DOSE^ 202 MCG -400 MCG

REACTIONS (1)
  - Aphthous stomatitis [Recovered/Resolved]
